FAERS Safety Report 5320011-1 (Version None)
Quarter: 2007Q2

REPORT INFORMATION
  Report Type: 
  Country: None (occurrence: None)
  Receive Date: 20070509
  Receipt Date: 20070501
  Transmission Date: 20071010
  Serious: Yes (Other)
  Sender: FDA-Public Use
  Company Number: US-JNJFOC-20070500448

PATIENT
  Age: 73 Year
  Sex: Female
  Weight: 109.77 kg

DRUGS (3)
  1. REMICADE [Suspect]
     Indication: RHEUMATOID ARTHRITIS
     Dosage: ON REMICADE FOR ABOUT 3-4 YEARS
     Route: 042
  2. MTX [Concomitant]
  3. VITAMINS [Concomitant]

REACTIONS (2)
  - LUNG NEOPLASM MALIGNANT [None]
  - ORAL MUCOSAL BLISTERING [None]
